FAERS Safety Report 17949989 (Version 2)
Quarter: 2020Q3

REPORT INFORMATION
  Report Type: Spontaneous
  Country: JP (occurrence: JP)
  Receive Date: 20200626
  Receipt Date: 20200729
  Transmission Date: 20201103
  Serious: Yes (Hospitalization)
  Sender: FDA-Public Use
  Company Number: JP-BAUSCH-BL-2020-005281

PATIENT
  Age: 70 Year
  Sex: Male
  Weight: 73 kg

DRUGS (2)
  1. LUMICEF [Suspect]
     Active Substance: BRODALUMAB
     Dosage: RESTARTED
     Route: 058
     Dates: start: 20200123
  2. LUMICEF [Suspect]
     Active Substance: BRODALUMAB
     Indication: PSORIASIS
     Dosage: SYRINGE
     Route: 058
     Dates: start: 20190213

REACTIONS (1)
  - Autoimmune hepatitis [Recovering/Resolving]

NARRATIVE: CASE EVENT DATE: 20200108
